FAERS Safety Report 5197685-1 (Version None)
Quarter: 2007Q1

REPORT INFORMATION
  Report Type: 
  Country: None (occurrence: None)
  Receive Date: 20070103
  Receipt Date: 20061228
  Transmission Date: 20070707
  Serious: Yes (Other)
  Sender: FDA-Public Use
  Company Number: SE-PFIZER INC-2006156019

PATIENT

DRUGS (2)
  1. FRAGMIN [Suspect]
  2. PROGESTERONE [Suspect]

REACTIONS (4)
  - CONGENITAL HAND MALFORMATION [None]
  - DRUG EXPOSURE DURING PREGNANCY [None]
  - SYNDACTYLY [None]
  - VENTRICULAR SEPTAL DEFECT [None]
